FAERS Safety Report 10188237 (Version 5)
Quarter: 2014Q4

REPORT INFORMATION
  Report Type: Spontaneous
  Country: US (occurrence: US)
  Receive Date: 20140522
  Receipt Date: 20141010
  Transmission Date: 20150528
  Serious: Yes (Death, Hospitalization, Other)
  Sender: FDA-Public Use
  Company Number: US-009507513-1405USA009979

PATIENT
  Sex: Female
  Weight: 108.84 kg

DRUGS (4)
  1. JANUMET [Suspect]
     Active Substance: METFORMIN HYDROCHLORIDE\SITAGLIPTIN PHOSPHATE
     Indication: TYPE 2 DIABETES MELLITUS
     Dosage: 50-1000MG BID
     Route: 048
     Dates: start: 201012, end: 20110620
  2. BYETTA [Suspect]
     Active Substance: EXENATIDE
     Indication: TYPE 2 DIABETES MELLITUS
     Dosage: 5 MICROGRAM, QD
     Dates: start: 200609, end: 200610
  3. VICTOZA [Suspect]
     Active Substance: LIRAGLUTIDE
     Indication: TYPE 2 DIABETES MELLITUS
     Dosage: 6MG/1ML QD
     Dates: start: 201101, end: 201104
  4. BYETTA [Suspect]
     Active Substance: EXENATIDE
     Dosage: 10 MICROGRAM, QD
     Dates: start: 200610, end: 200911

REACTIONS (15)
  - Metastatic carcinoid tumour [Unknown]
  - Retroperitoneal lymphadenopathy [Unknown]
  - Hepatic encephalopathy [Unknown]
  - Metastases to bone [Unknown]
  - Renal cyst [Unknown]
  - Metastases to liver [Unknown]
  - Pancreatic neuroendocrine tumour metastatic [Unknown]
  - Hypokalaemia [Unknown]
  - Pulmonary mass [Unknown]
  - Pancreatic necrosis [Unknown]
  - Spinal cord disorder [Unknown]
  - Adrenal adenoma [Unknown]
  - Pancreatic carcinoma [Fatal]
  - Metastases to lymph nodes [Unknown]
  - Headache [Unknown]

NARRATIVE: CASE EVENT DATE: 20100917
